FAERS Safety Report 26199523 (Version 1)
Quarter: 2025Q4

REPORT INFORMATION
  Report Type: Report from Study
  Country: EU (occurrence: EU)
  Receive Date: 20251225
  Receipt Date: 20251225
  Transmission Date: 20260118
  Serious: Yes (Death, Other)
  Sender: AUROBINDO
  Company Number: EU-AUROBINDO-AUR-APL-2019-001496

PATIENT

DRUGS (1)
  1. PREDNISONE [Suspect]
     Active Substance: PREDNISONE
     Indication: Nephrotic syndrome
     Dosage: SCHEDULED TO RECEIVE TREATMENT WITH LOW-DOSE PREDNISONE (0.5 MG/KG/DAY, MAXIMUM 40 MG/DAY) FOR 24...
     Route: 061

REACTIONS (1)
  - Septic shock [Fatal]
